FAERS Safety Report 21238597 (Version 1)
Quarter: 2022Q3

REPORT INFORMATION
  Report Type: Report from Study
  Country: US (occurrence: US)
  Receive Date: 20220822
  Receipt Date: 20220822
  Transmission Date: 20221027
  Serious: Yes (Other)
  Sender: FDA-Public Use
  Company Number: US-GLAXOSMITHKLINE-US2022AMR115798

PATIENT

DRUGS (1)
  1. NIRAPARIB [Suspect]
     Active Substance: NIRAPARIB
     Indication: Product used for unknown indication
     Dosage: UNK

REACTIONS (7)
  - Pancytopenia [Unknown]
  - Neuropathy peripheral [Unknown]
  - Pain [Unknown]
  - Fatigue [Unknown]
  - Mucosal inflammation [Unknown]
  - Dysgeusia [Unknown]
  - Anaemia [Unknown]
